FAERS Safety Report 26080795 (Version 1)
Quarter: 2025Q4

REPORT INFORMATION
  Report Type: Spontaneous
  Country: CA (occurrence: CA)
  Receive Date: 20251124
  Receipt Date: 20251124
  Transmission Date: 20260117
  Serious: Yes (Hospitalization, Other)
  Sender: BOEHRINGER INGELHEIM
  Company Number: CA-BoehringerIngelheim-2025-BI-108810

PATIENT

DRUGS (35)
  1. PRAMIPEXOLE [Suspect]
     Active Substance: PRAMIPEXOLE
     Indication: Depression
  2. PRAMIPEXOLE [Suspect]
     Active Substance: PRAMIPEXOLE
  3. BREXPIPRAZOLE [Suspect]
     Active Substance: BREXPIPRAZOLE
     Indication: Depression
  4. GABAPENTIN [Suspect]
     Active Substance: GABAPENTIN
     Indication: Depression
  5. LORAZEPAM [Suspect]
     Active Substance: LORAZEPAM
     Indication: Depression
  6. LURASIDONE HYDROCHLORIDE [Suspect]
     Active Substance: LURASIDONE HYDROCHLORIDE
     Indication: Depression
  7. LURASIDONE HYDROCHLORIDE [Suspect]
     Active Substance: LURASIDONE HYDROCHLORIDE
  8. OLANZAPINE [Suspect]
     Active Substance: OLANZAPINE
     Indication: Depression
  9. PANTOPRAZOLE [Suspect]
     Active Substance: PANTOPRAZOLE
     Indication: Gastrooesophageal reflux disease
  10. PAROXETINE HYDROCHLORIDE [Suspect]
     Active Substance: PAROXETINE HYDROCHLORIDE
     Indication: Depression
  11. QUETIAPINE [Suspect]
     Active Substance: QUETIAPINE
     Indication: Depression
  12. RISPERIDONE [Suspect]
     Active Substance: RISPERIDONE
     Indication: Depression
  13. VENLAFAXINE HYDROCHLORIDE [Suspect]
     Active Substance: VENLAFAXINE HYDROCHLORIDE
     Indication: Depression
  14. ZOPICLONE [Suspect]
     Active Substance: ZOPICLONE
     Indication: Depression
  15. APIXABAN [Suspect]
     Active Substance: APIXABAN
     Indication: Deep vein thrombosis
  16. APIXABAN [Suspect]
     Active Substance: APIXABAN
     Indication: Anticoagulant therapy
  17. BUPROPION [Suspect]
     Active Substance: BUPROPION
     Indication: Depression
  18. BUPROPION [Suspect]
     Active Substance: BUPROPION
  19. BUPROPION [Suspect]
     Active Substance: BUPROPION
  20. LAMOTRIGINE [Suspect]
     Active Substance: LAMOTRIGINE
     Indication: Depression
  21. LEMBOREXANT [Suspect]
     Active Substance: LEMBOREXANT
     Indication: Insomnia
  22. LEMBOREXANT [Suspect]
     Active Substance: LEMBOREXANT
     Indication: Depression
  23. DAYVIGO [Suspect]
     Active Substance: LEMBOREXANT
     Indication: Depression
  24. FLUOXETINE [Suspect]
     Active Substance: FLUOXETINE HYDROCHLORIDE
     Indication: Depression
  25. LEVOMEPROMAZINE [Suspect]
     Active Substance: LEVOMEPROMAZINE
     Indication: Depression
  26. MIRTAZAPINE [Suspect]
     Active Substance: MIRTAZAPINE
     Indication: Depression
  27. MIRTAZAPINE [Suspect]
     Active Substance: MIRTAZAPINE
     Indication: Anticoagulant therapy
  28. ESCITALOPRAM OXALATE [Suspect]
     Active Substance: ESCITALOPRAM OXALATE
     Indication: Depression
  29. VORTIOXETINE [Suspect]
     Active Substance: VORTIOXETINE
     Indication: Depression
  30. CANNABIS SATIVA FLOWERING TOP [Suspect]
     Active Substance: CANNABIS SATIVA FLOWERING TOP
     Indication: Insomnia
  31. CLOMIPRAMINE [Suspect]
     Active Substance: CLOMIPRAMINE
     Indication: Depression
  32. FLUVOXAMINE [Suspect]
     Active Substance: FLUVOXAMINE
     Indication: Depression
  33. LEVOMEPROMAZINE MALEATE [Suspect]
     Active Substance: LEVOMEPROMAZINE MALEATE
     Indication: Depression
  34. ZOLPIDEM [Suspect]
     Active Substance: ZOLPIDEM TARTRATE
     Indication: Depression
  35. LEVOMEPROMAZINE [Suspect]
     Active Substance: LEVOMEPROMAZINE
     Indication: Depression

REACTIONS (7)
  - Adverse drug reaction [Recovered/Resolved]
  - Condition aggravated [Recovered/Resolved]
  - Suicidal ideation [Recovered/Resolved]
  - Suicide attempt [Recovered/Resolved]
  - Drug ineffective [Recovered/Resolved]
  - Underdose [Recovered/Resolved]
  - Therapy non-responder [Recovered/Resolved]
